FAERS Safety Report 9073479 (Version 1)
Quarter: 2013Q1

REPORT INFORMATION
  Report Type: Report from Study
  Country: US (occurrence: US)
  Receive Date: 20130129
  Receipt Date: 20130129
  Transmission Date: 20140127
  Serious: No
  Sender: FDA-Public Use
  Company Number: US-ABBOTT-12P-163-0941986-00

PATIENT
  Age: 74 None
  Sex: Female

DRUGS (17)
  1. HUMIRA 40 MG/0.8 ML PEN [Suspect]
     Indication: RHEUMATOID ARTHRITIS
  2. LISINOPRIL/HCTZ [Concomitant]
     Indication: BLOOD PRESSURE
     Dosage: 10/12.5MG DAILY
  3. COZAAR [Concomitant]
     Indication: BLOOD PRESSURE
     Dosage: DAILY
  4. CRESTOR [Concomitant]
     Indication: BLOOD CHOLESTEROL
     Dosage: ALTERNATES 5MG AND 10MG DAILY
  5. ADVAIR [Concomitant]
     Indication: CHRONIC OBSTRUCTIVE PULMONARY DISEASE
     Dosage: 250/50 AT NIGHT
  6. PREDNISONE [Concomitant]
     Indication: RHEUMATOID ARTHRITIS
     Dosage: 2MG DAILY
  7. BABY ASPIRIN [Concomitant]
     Indication: PROPHYLAXIS
     Dosage: DAILY
  8. AMBIEN [Concomitant]
     Indication: INSOMNIA
     Dosage: NIGHTLY
  9. REQUIP [Concomitant]
     Indication: RESTLESS LEGS SYNDROME
     Dosage: NIGHTLY
  10. DEXILANT [Concomitant]
     Indication: GASTROOESOPHAGEAL REFLUX DISEASE
     Dosage: AT BEDTIME
  11. ALBUTEROL [Concomitant]
     Indication: PRODUCT USED FOR UNKNOWN INDICATION
  12. VITAMIN B6 [Concomitant]
     Indication: PRODUCT USED FOR UNKNOWN INDICATION
  13. VITAMIN B12 [Concomitant]
     Indication: PRODUCT USED FOR UNKNOWN INDICATION
  14. VITAMIN C [Concomitant]
     Indication: PRODUCT USED FOR UNKNOWN INDICATION
  15. VITAMIN D [Concomitant]
     Indication: PRODUCT USED FOR UNKNOWN INDICATION
  16. ZINC [Concomitant]
     Indication: PRODUCT USED FOR UNKNOWN INDICATION
  17. FOLIC ACID [Concomitant]
     Indication: PRODUCT USED FOR UNKNOWN INDICATION

REACTIONS (5)
  - Wrong technique in drug usage process [Unknown]
  - Drug dose omission [Unknown]
  - Needle issue [Unknown]
  - Injection site pain [Recovered/Resolved]
  - Injection site haemorrhage [Recovered/Resolved]
